FAERS Safety Report 9782545 (Version 2)
Quarter: 2014Q1

REPORT INFORMATION
  Report Type: Spontaneous
  Country: US (occurrence: US)
  Receive Date: 20131226
  Receipt Date: 20140203
  Transmission Date: 20141002
  Serious: No
  Sender: FDA-Public Use
  Company Number: US-TEVA-450690USA

PATIENT
  Age: 41 Year
  Sex: Female
  Weight: 63.11 kg

DRUGS (1)
  1. PARAGARD 380A [Suspect]
     Indication: CONTRACEPTION
     Route: 015
     Dates: start: 20130603, end: 20131205

REACTIONS (1)
  - Device expulsion [Recovered/Resolved]
